FAERS Safety Report 7638650-1 (Version None)
Quarter: 2011Q3

REPORT INFORMATION
  Report Type: 
  Country: None (occurrence: None)
  Receive Date: 20110720
  Receipt Date: 20110708
  Transmission Date: 20111222
  Serious: Yes (Life-Threatening, Hospitalization)
  Sender: FDA-Public Use
  Company Number: WAES 1107USA01535

PATIENT
  Age: 67 Year
  Sex: Male

DRUGS (2)
  1. PLACEBO [Suspect]
     Indication: ACUTE CORONARY SYNDROME
     Route: 048
  2. VYTORIN [Suspect]
     Indication: ACUTE CORONARY SYNDROME
     Dosage: 10-40 MG/DAILY
     Route: 048

REACTIONS (2)
  - GASTROINTESTINAL CARCINOMA [None]
  - DIABETIC FOOT [None]
